FAERS Safety Report 4510204-5 (Version None)
Quarter: 2004Q4

REPORT INFORMATION
  Report Type: 
  Country: None (occurrence: None)
  Receive Date: 20041119
  Receipt Date: 20041109
  Transmission Date: 20050328
  Serious: Yes (Hospitalization)
  Sender: FDA-Public Use
  Company Number: 2004SE05581

PATIENT
  Age: 62 Year
  Sex: Male
  Weight: 61 kg

DRUGS (8)
  1. BLOPRESS [Suspect]
     Indication: HYPERTENSION
     Dosage: 8 MG QD PO
     Route: 048
     Dates: start: 20030220, end: 20030918
  2. BLOPRESS [Suspect]
     Indication: HYPERTENSION
     Dosage: 4 MG QD PO
     Route: 048
     Dates: start: 20030919, end: 20040121
  3. GLYBURIDE [Concomitant]
  4. LACTOBACILLUS BIFIDUS, LYOPHILIZED [Concomitant]
  5. LOPERAMIDE HYDROCHLORIDE [Concomitant]
  6. ACTOS [Concomitant]
  7. ALBUMIN TANNATE [Concomitant]
  8. TAMSULOSIN HYDROCHLORIDE [Concomitant]

REACTIONS (9)
  - BLOOD CREATININE INCREASED [None]
  - BLOOD UREA INCREASED [None]
  - DIABETIC NEPHROPATHY [None]
  - DIABETIC RETINOPATHY [None]
  - DISEASE PROGRESSION [None]
  - DIZZINESS POSTURAL [None]
  - OEDEMA PERIPHERAL [None]
  - RENAL DISORDER [None]
  - WEIGHT INCREASED [None]
